FAERS Safety Report 13230751 (Version 2)
Quarter: 2017Q1

REPORT INFORMATION
  Report Type: Report from Study
  Country: JP (occurrence: JP)
  Receive Date: 20170214
  Receipt Date: 20170216
  Transmission Date: 20170428
  Serious: Yes (Hospitalization)
  Sender: FDA-Public Use
  Company Number: JP-PFIZER INC-2017060839

PATIENT
  Age: 56 Year
  Sex: Male

DRUGS (10)
  1. HEPARINOID [Concomitant]
     Active Substance: CHONDROITIN SULFATE (BOVINE)
     Dosage: 50 G, 1X/DAY
     Route: 062
     Dates: start: 20160705
  2. SUNITINIB MALATE. [Suspect]
     Active Substance: SUNITINIB MALATE
     Indication: RENAL CELL CARCINOMA
     Dosage: UNK UNK, DAILY
     Route: 048
     Dates: start: 20160614
  3. BETAMETHASONE VALERATE. [Concomitant]
     Active Substance: BETAMETHASONE VALERATE
     Dosage: UNK
  4. BACAMPICILLIN HCL [Concomitant]
     Active Substance: BACAMPICILLIN HYDROCHLORIDE
     Indication: UPPER RESPIRATORY TRACT INFECTION
     Dosage: 250 MG, 3X/DAY
     Route: 048
     Dates: start: 20160725, end: 20160730
  5. HEPARINOID [Concomitant]
     Active Substance: CHONDROITIN SULFATE (BOVINE)
     Indication: PROPHYLAXIS
     Dosage: UNK
     Route: 062
     Dates: start: 20160614
  6. ACETAMINOPHEN. [Concomitant]
     Active Substance: ACETAMINOPHEN
     Indication: ASCITES
     Dosage: 200 MG, AS NEEDED
     Route: 048
     Dates: start: 20160819, end: 20160916
  7. DEXTROMETHORPHAN HYDROBROMIDE. [Concomitant]
     Active Substance: DEXTROMETHORPHAN HYDROBROMIDE
     Dosage: UNK
  8. SUNITINIB MALATE. [Suspect]
     Active Substance: SUNITINIB MALATE
     Dosage: 37.5 MG, UNK
     Route: 048
     Dates: start: 20160817
  9. GENTAMICIN SULFATE. [Concomitant]
     Active Substance: GENTAMICIN SULFATE
     Dosage: UNK
  10. PELEX [Concomitant]
     Active Substance: CETYLPYRIDINIUM CHLORIDE\CHLORPHENIRAMINE MALEATE\GLYCYRRHIZINATE DIPOTASSIUM
     Indication: UPPER RESPIRATORY TRACT INFECTION
     Dosage: 1 MG, 3X/DAY
     Route: 048
     Dates: start: 20160725, end: 20160730

REACTIONS (1)
  - Dehydration [Not Recovered/Not Resolved]

NARRATIVE: CASE EVENT DATE: 20160819
